FAERS Safety Report 9536510 (Version 3)
Quarter: 2013Q4

REPORT INFORMATION
  Report Type: Spontaneous
  Country: US (occurrence: US)
  Receive Date: 20130919
  Receipt Date: 20131111
  Transmission Date: 20140711
  Serious: Yes (Death, Hospitalization, Other)
  Sender: FDA-Public Use
  Company Number: US-ASTELLAS-2013US009779

PATIENT
  Age: 59 Year
  Sex: Male

DRUGS (5)
  1. PROGRAF [Suspect]
     Indication: RENAL AND PANCREAS TRANSPLANT
     Dosage: 3 MG, BID
     Route: 048
     Dates: start: 20110520, end: 20130618
  2. PREDNISONE [Suspect]
     Indication: RENAL AND PANCREAS TRANSPLANT
     Dosage: 5 MG, UID/QD
     Route: 065
  3. PREDNISONE [Suspect]
     Dosage: 15 MG, UID/QD
     Dates: start: 20130607
  4. MYFORTIC [Concomitant]
     Indication: RENAL AND PANCREAS TRANSPLANT
     Dosage: 720 MG, BID
     Route: 048
  5. MYFORTIC [Concomitant]
     Dosage: 540 MG, BID
     Route: 048

REACTIONS (14)
  - Off label use [Unknown]
  - Non-small cell lung cancer metastatic [Fatal]
  - Adrenal insufficiency [Unknown]
  - Renal failure chronic [Unknown]
  - Neck mass [Unknown]
  - Urinary retention [Unknown]
  - Renal failure acute [Unknown]
  - Malignant pleural effusion [Unknown]
  - Pericardial effusion malignant [Unknown]
  - Cerebral small vessel ischaemic disease [Unknown]
  - Skeletal injury [Unknown]
  - Skeletal injury [Unknown]
  - Hypercalcaemia [Unknown]
  - Hypertension [Unknown]
